FAERS Safety Report 15017569 (Version 1)
Quarter: 2018Q2

REPORT INFORMATION
  Report Type: Other
  Country: BE (occurrence: BE)
  Receive Date: 20180615
  Receipt Date: 20180615
  Transmission Date: 20180711
  Serious: Yes (Disabling)
  Sender: FDA-Public Use
  Company Number: BE-CELLTRION INC.-2018BE020560

PATIENT

DRUGS (4)
  1. REMSIMA [Suspect]
     Active Substance: INFLIXIMAB
     Indication: COLITIS ULCERATIVE
     Dosage: UNK
     Route: 042
     Dates: start: 20180126, end: 20180126
  2. STEOVIT D3 [Concomitant]
     Active Substance: CALCIUM CARBONATE\CHOLECALCIFEROL
     Dosage: 500 MG, DAILY
     Route: 048
  3. IMODIUM [Concomitant]
     Active Substance: LOPERAMIDE HYDROCHLORIDE
     Dosage: 1 DF, PRN (AS NECESSARY)
  4. D-CURE [Concomitant]
     Active Substance: CHOLECALCIFEROL
     Dosage: 1 DF,0.33 WEEK

REACTIONS (5)
  - Decreased activity [Unknown]
  - Fatigue [Unknown]
  - Product substitution issue [Unknown]
  - Pouchitis [Unknown]
  - Frequent bowel movements [Unknown]

NARRATIVE: CASE EVENT DATE: 20180323
